FAERS Safety Report 6229109-7 (Version None)
Quarter: 2009Q2

REPORT INFORMATION
  Report Type: 
  Country: None (occurrence: None)
  Receive Date: 20090601
  Receipt Date: 20090320
  Transmission Date: 20091009
  Serious: Yes (Hospitalization)
  Sender: FDA-Public Use
  Company Number: US200903005254

PATIENT
  Age: 76 Year
  Sex: Female
  Weight: 74.8 kg

DRUGS (4)
  1. BYETTA [Suspect]
     Indication: TYPE 2 DIABETES MELLITUS
     Dosage: 10 UG, 2/D, SUBCUTANEOUS
     Route: 058
     Dates: start: 20090302, end: 20090309
  2. EXENATIDE PEN [Concomitant]
  3. PANTOPRAZOLE SODIUM [Concomitant]
  4. JANUMET (METFORMIN HYDROCHLORIDE, SITAGLIPTIN PHOSPHATE) [Concomitant]

REACTIONS (7)
  - DEHYDRATION [None]
  - HAEMATOCHEZIA [None]
  - INFLUENZA [None]
  - LARGE INTESTINAL ULCER [None]
  - OESOPHAGITIS [None]
  - RETCHING [None]
  - ULCER HAEMORRHAGE [None]
